FAERS Safety Report 9496581 (Version 1)
Quarter: 2013Q3

REPORT INFORMATION
  Report Type: Spontaneous
  Country: DK (occurrence: FR)
  Receive Date: 20130904
  Receipt Date: 20130904
  Transmission Date: 20140515
  Serious: Yes (Hospitalization)
  Sender: FDA-Public Use
  Company Number: FR-FRI-1000048333

PATIENT
  Age: 59 Year
  Sex: Male

DRUGS (15)
  1. ESCITALOPRAM [Suspect]
     Indication: DEPRESSION
     Dosage: 5 MG
     Route: 048
     Dates: start: 20130628, end: 20130628
  2. VICTOZA [Suspect]
     Dosage: 0.6 MG
     Route: 050
     Dates: start: 20130627, end: 20130627
  3. KARDEGIC [Concomitant]
  4. INEXIUM [Concomitant]
  5. GLUCOPHAGE [Concomitant]
     Dosage: 3 DF
  6. TAHOR [Concomitant]
     Dosage: 1 DF
  7. TRIATEC [Concomitant]
     Dosage: 1 DF
  8. CARDENSIEL [Concomitant]
     Dosage: 1 DF
  9. ZYLORIC [Concomitant]
     Dosage: 1 DF
  10. AMLOR [Concomitant]
     Dosage: 1 DF
  11. COLCHIMAX [Concomitant]
     Dosage: 1 DF
  12. TARDYFERON B9 [Concomitant]
     Dosage: 1 DF
  13. NOVORAPID [Concomitant]
     Dates: start: 20130624
  14. LAROXYL [Concomitant]
     Indication: DEPRESSION
     Dosage: 19 GTT
     Dates: start: 20130627
  15. GLICLAZIDE [Concomitant]
     Dosage: 2 DF
     Dates: start: 20130627

REACTIONS (3)
  - Malaise [Recovered/Resolved]
  - Loss of consciousness [Recovered/Resolved]
  - Headache [Recovered/Resolved]
